FAERS Safety Report 8128888-1 (Version None)
Quarter: 2012Q1

REPORT INFORMATION
  Report Type: 
  Country: None (occurrence: None)
  Receive Date: 20120210
  Receipt Date: 20120130
  Transmission Date: 20120608
  Serious: Yes (Hospitalization)
  Sender: FDA-Public Use
  Company Number: FR-PFIZER INC-HQWYE820704OCT05

PATIENT
  Age: 77 Year
  Sex: Female

DRUGS (26)
  1. RULID [Suspect]
     Indication: CHEST X-RAY ABNORMAL
     Dosage: 150 MG, 2X/DAY
     Route: 048
     Dates: start: 20050721, end: 20050803
  2. PREVISCAN [Concomitant]
     Dosage: UNK
     Route: 048
     Dates: start: 20050711
  3. MIXTARD HUMAN 70/30 [Concomitant]
     Indication: DIABETES MELLITUS
     Route: 065
  4. CORDARONE [Suspect]
     Dosage: 200 MG, 1X/DAY
     Route: 048
     Dates: start: 20050621, end: 20050706
  5. RAMIPRIL [Concomitant]
     Indication: HYPERTENSION
     Dosage: UNK
     Route: 048
     Dates: start: 20050624
  6. OXEOL [Concomitant]
     Dosage: UNK
     Route: 048
     Dates: start: 20050624
  7. BRONCHODUAL [Concomitant]
     Dosage: UNK
     Route: 055
     Dates: end: 20050527
  8. BECLOMETASONE [Concomitant]
     Dosage: UNK
     Route: 055
     Dates: end: 20050527
  9. DILTIAZEM HCL [Suspect]
     Dosage: UNK
     Route: 048
     Dates: start: 20050625, end: 20050629
  10. DILTIAZEM HCL [Suspect]
     Dosage: 60 MG, UNK
     Route: 048
     Dates: start: 20050629, end: 20050706
  11. NOROXIN [Suspect]
     Indication: URINARY TRACT INFECTION
     Dosage: 400 MG, 2X/DAY
     Route: 048
     Dates: start: 20050715, end: 20050721
  12. RULID [Suspect]
     Indication: GENERAL PHYSICAL HEALTH DETERIORATION
  13. RULID [Suspect]
     Indication: PYREXIA
  14. OXEOL [Concomitant]
     Dosage: UNK
     Route: 048
     Dates: end: 20050527
  15. OXEOL [Concomitant]
     Dosage: UNK
     Route: 048
     Dates: start: 20050602, end: 20050620
  16. CORDARONE [Suspect]
     Indication: ATRIAL FIBRILLATION
     Dosage: 200 MG, 1X/DAY
     Route: 048
     Dates: end: 20050601
  17. TENORMIN [Concomitant]
     Dosage: UNK
     Route: 065
     Dates: start: 20000101, end: 20050527
  18. PAROXETINE HYDROCHLORIDE [Suspect]
     Dosage: 20.0 MG, 1X/DAY
     Route: 048
     Dates: start: 20050711, end: 20050721
  19. NEBIVOLOL [Concomitant]
     Dosage: UNK
     Route: 048
     Dates: start: 20050531, end: 20050620
  20. TENORMIN [Concomitant]
     Dosage: UNK
     Dates: start: 20050621
  21. PREVISCAN [Concomitant]
     Dosage: UNK
     Route: 048
     Dates: start: 20000101, end: 20050620
  22. PREVISCAN [Concomitant]
     Dosage: UNK
     Route: 048
     Dates: start: 20050624, end: 20050629
  23. LASIX [Concomitant]
     Indication: HYPERTENSION
     Dosage: UNK
     Route: 065
  24. FORADIL [Concomitant]
     Dosage: UNK
     Route: 055
     Dates: end: 20050527
  25. FORADIL [Concomitant]
     Dosage: UNK
     Route: 055
     Dates: start: 20050602, end: 20050620
  26. SOLU-MEDROL [Concomitant]
     Dosage: UNK
     Dates: start: 20050601, end: 20050628

REACTIONS (2)
  - EOSINOPHILIA [None]
  - EOSINOPHILIC PNEUMONIA [None]
